FAERS Safety Report 13829193 (Version 3)
Quarter: 2018Q1

REPORT INFORMATION
  Report Type: Other
  Country: US (occurrence: US)
  Receive Date: 20170803
  Receipt Date: 20180109
  Transmission Date: 20180508
  Serious: Yes (Other)
  Sender: FDA-Public Use
  Company Number: US-ACORDA-ACO_140353_2017

PATIENT
  Age: 68 Year
  Sex: Female

DRUGS (6)
  1. LEUCOVORIN. [Suspect]
     Active Substance: LEUCOVORIN
     Indication: HEPATIC CANCER METASTATIC
     Dosage: UNK
     Route: 065
  2. AMPYRA [Suspect]
     Active Substance: DALFAMPRIDINE
     Indication: MULTIPLE SCLEROSIS
     Dosage: 10 MG, BID
     Route: 048
     Dates: start: 20120808
  3. IRINOTECAN [Suspect]
     Active Substance: IRINOTECAN
     Indication: HEPATIC CANCER METASTATIC
     Dosage: UNK
     Route: 065
  4. AMPYRA [Suspect]
     Active Substance: DALFAMPRIDINE
     Dosage: 10 MG, BID
     Route: 048
     Dates: start: 201208, end: 201711
  5. AMPYRA [Suspect]
     Active Substance: DALFAMPRIDINE
     Dosage: UNK
  6. FLUOROURACIL. [Suspect]
     Active Substance: FLUOROURACIL
     Indication: HEPATIC CANCER METASTATIC
     Dosage: UNK
     Route: 065

REACTIONS (6)
  - Hepatotoxicity [Unknown]
  - Haemoglobin decreased [Unknown]
  - Adenocarcinoma of colon [Unknown]
  - Condition aggravated [Unknown]
  - Gait disturbance [Unknown]
  - Metastases to liver [Unknown]

NARRATIVE: CASE EVENT DATE: 20170629
